FAERS Safety Report 16824094 (Version 1)
Quarter: 2019Q3

REPORT INFORMATION
  Report Type: Spontaneous
  Country: PL (occurrence: PL)
  Receive Date: 20190918
  Receipt Date: 20190918
  Transmission Date: 20191005
  Serious: Yes (Other)
  Sender: FDA-Public Use
  Company Number: PL-MYLANLABS-2019M1086297

PATIENT
  Age: 42 Year
  Sex: Female

DRUGS (5)
  1. CALCIUM [Suspect]
     Active Substance: CALCIUM
     Indication: BONE DENSITY DECREASED
     Dosage: UNK
     Route: 065
  2. SYSTEN SEQUI [Concomitant]
     Active Substance: ESTRADIOL
     Indication: PRIMARY HYPOGONADISM
     Dosage: UNK (TRANSDERMAL PATCH SYSTEM)
     Route: 062
  3. VITAMIN D3 [Suspect]
     Active Substance: CHOLECALCIFEROL
     Indication: BONE DENSITY DECREASED
     Dosage: UNK
     Route: 065
  4. ALENDRONATE [Suspect]
     Active Substance: ALENDRONATE SODIUM
     Indication: BONE DENSITY DECREASED
     Dosage: UNK
     Route: 065
  5. TRISEQUENS                         /00686201/ [Concomitant]
     Indication: PRIMARY HYPOGONADISM
     Dosage: UNK
     Route: 048

REACTIONS (3)
  - Hypothyroidism [Recovered/Resolved]
  - Drug ineffective [Unknown]
  - Deafness bilateral [Unknown]

NARRATIVE: CASE EVENT DATE: 2011
